FAERS Safety Report 4705639-1 (Version None)
Quarter: 2005Q3

REPORT INFORMATION
  Report Type: 
  Country: None (occurrence: None)
  Receive Date: 20050701
  Receipt Date: 20050621
  Transmission Date: 20060218
  Serious: Yes (Hospitalization)
  Sender: FDA-Public Use
  Company Number: US-BOEHRINGER INGELHEIM PHARMACEUTICALS, INC.-2005-DE-02358GD

PATIENT
  Age: 45 Year
  Sex: Female

DRUGS (10)
  1. IPRATROPIUM BROMIDE [Suspect]
     Indication: COUGH
  2. IPRATROPIUM BROMIDE [Suspect]
     Indication: DYSPNOEA
  3. SALBUTAMOL [Suspect]
     Indication: COUGH
  4. SALBUTAMOL [Suspect]
     Indication: DYSPNOEA
  5. THEOPHYLLINE [Suspect]
     Indication: COUGH
  6. THEOPHYLLINE [Suspect]
     Indication: DYSPNOEA
  7. FLUTICASONE PROPIONATE [Suspect]
     Indication: COUGH
  8. FLUTICASONE PROPIONATE [Suspect]
     Indication: DYSPNOEA
  9. SALMETEROL [Suspect]
     Indication: COUGH
  10. SALMETEROL [Suspect]
     Indication: DYSPNOEA

REACTIONS (4)
  - DRUG INEFFECTIVE [None]
  - MYOCARDIAL ISCHAEMIA [None]
  - TACHYCARDIA [None]
  - THERAPY NON-RESPONDER [None]
